FAERS Safety Report 16711787 (Version 3)
Quarter: 2019Q3

REPORT INFORMATION
  Report Type: Spontaneous
  Country: US (occurrence: US)
  Receive Date: 20190816
  Receipt Date: 20190913
  Transmission Date: 20191004
  Serious: No
  Sender: FDA-Public Use
  Company Number: US-SA-2019SA226771

PATIENT
  Age: 56 Year
  Sex: Female

DRUGS (1)
  1. CABLIVI [Suspect]
     Active Substance: CAPLACIZUMAB-YHDP
     Indication: THROMBOTIC MICROANGIOPATHY
     Dosage: 11 MG, QD
     Route: 058

REACTIONS (9)
  - Asthenia [Unknown]
  - Oropharyngeal pain [Unknown]
  - Otorrhoea [Unknown]
  - Chills [Recovering/Resolving]
  - Laryngitis [Unknown]
  - Ear disorder [Unknown]
  - Headache [Recovering/Resolving]
  - Epistaxis [Recovered/Resolved]
  - Decreased activity [Unknown]
